FAERS Safety Report 18491609 (Version 3)
Quarter: 2021Q2

REPORT INFORMATION
  Report Type: Spontaneous
  Country: CA (occurrence: CA)
  Receive Date: 20201111
  Receipt Date: 20210427
  Transmission Date: 20210717
  Serious: Yes (Hospitalization)
  Sender: FDA-Public Use
  Company Number: CA-SAMSUNG BIOEPIS-SB-2020-33977

PATIENT
  Age: 35 Year
  Sex: Male

DRUGS (4)
  1. EPIPEN [Concomitant]
     Active Substance: EPINEPHRINE
     Dosage: DOSE: UNKNOWN?STRENGTH: 0.3 MG/0.3 ML?FORM OF ADMINISTRATION: SOLUTION INTRAMUSCULAR (AUTO INJECTOR)
     Route: 065
  2. EPIPEN [Concomitant]
     Active Substance: EPINEPHRINE
     Indication: PRODUCT USED FOR UNKNOWN INDICATION
     Dosage: DOSE: UNKNOWN?STRENGTH: 0.3 MG/0.3 ML?FORM OF ADMINISTRATION: SOLUTION INTRAMUSCULAR (AUTO INJECTOR)
     Route: 065
  3. SOLU?CORTEF [Concomitant]
     Active Substance: HYDROCORTISONE SODIUM SUCCINATE
     Indication: PRODUCT USED FOR UNKNOWN INDICATION
     Dosage: POWDER FOR SOLUTION INTRAMUSCULAR, DOSE: UNKNOWN
     Route: 048
  4. INFLIXIMAB [Suspect]
     Active Substance: INFLIXIMAB
     Indication: CROHN^S DISEASE
     Dosage: UNKNOWN
     Route: 042

REACTIONS (4)
  - Abdominal pain [Unknown]
  - Adrenal disorder [Unknown]
  - Malaise [Unknown]
  - Inflammatory bowel disease [Unknown]
